FAERS Safety Report 18081300 (Version 1)
Quarter: 2020Q3

REPORT INFORMATION
  Report Type: Report from Study
  Country: KR (occurrence: KR)
  Receive Date: 20200728
  Receipt Date: 20200728
  Transmission Date: 20201103
  Serious: Yes (Other)
  Sender: FDA-Public Use
  Company Number: KR-TAKEDA-2020TJP015342

PATIENT

DRUGS (1)
  1. ALOGLIPTIN, PIOGLITAZONE [Suspect]
     Active Substance: ALOGLIPTIN BENZOATE\PIOGLITAZONE HYDROCHLORIDE
     Indication: TYPE 2 DIABETES MELLITUS
     Dosage: 25MG/15MG, QD
     Route: 048

REACTIONS (1)
  - Pancreatic carcinoma [Unknown]
